FAERS Safety Report 22630215 (Version 8)
Quarter: 2023Q4

REPORT INFORMATION
  Report Type: Spontaneous
  Country: US (occurrence: US)
  Receive Date: 20230622
  Receipt Date: 20231115
  Transmission Date: 20240109
  Serious: Yes (Other)
  Sender: FDA-Public Use
  Company Number: US-FERRING-2023FE02966

PATIENT

DRUGS (12)
  1. FIRMAGON [Suspect]
     Active Substance: DEGARELIX ACETATE
     Indication: Product used for unknown indication
     Route: 065
  2. APALUTAMIDE [Suspect]
     Active Substance: APALUTAMIDE
     Indication: Prostate cancer
     Dosage: 240 MG, DAILY
     Route: 065
     Dates: start: 20231002
  3. ORGOVYX [Suspect]
     Active Substance: RELUGOLIX
     Indication: Prostate cancer
     Dosage: 120 MG, DAILY
     Route: 048
     Dates: start: 20230525
  4. ORGOVYX [Suspect]
     Active Substance: RELUGOLIX
     Dosage: 360 MG, 1 TIME DAILY
     Route: 048
     Dates: start: 20230524, end: 20230524
  5. ORGOVYX [Suspect]
     Active Substance: RELUGOLIX
     Dosage: UNK
     Route: 065
  6. NUBEQA [Suspect]
     Active Substance: DAROLUTAMIDE
     Indication: Product used for unknown indication
     Route: 065
  7. ERLEADA [Suspect]
     Active Substance: APALUTAMIDE
     Indication: Product used for unknown indication
     Route: 065
  8. CRESTOR [Concomitant]
     Active Substance: ROSUVASTATIN CALCIUM
     Indication: Product used for unknown indication
     Dosage: UNK
     Route: 065
  9. COENZYME Q10 [TOCOPHERYL ACETATE;UBIDECARENONE] [Concomitant]
     Indication: Product used for unknown indication
     Dosage: UNK
     Route: 065
  10. VITAMIN B12 [Concomitant]
     Active Substance: CYANOCOBALAMIN
     Indication: Product used for unknown indication
     Dosage: UNK
     Route: 065
  11. CHOLECALCIFEROL [Concomitant]
     Active Substance: CHOLECALCIFEROL
     Indication: Product used for unknown indication
     Dosage: UNK
     Route: 065
  12. POMI T [Concomitant]
     Indication: Product used for unknown indication
     Route: 065

REACTIONS (23)
  - Intestinal resection [Unknown]
  - Intestinal stenosis [Recovered/Resolved]
  - Dyspepsia [Unknown]
  - Nightmare [Unknown]
  - Gastrooesophageal reflux disease [Recovered/Resolved]
  - Lethargy [Unknown]
  - Memory impairment [Unknown]
  - Nerve compression [Unknown]
  - Abdominal discomfort [Unknown]
  - Abdominal discomfort [Unknown]
  - Constipation [Unknown]
  - Hot flush [Unknown]
  - Injection site pain [Unknown]
  - Injection related reaction [Unknown]
  - Fatigue [Not Recovered/Not Resolved]
  - Dyspnoea [Unknown]
  - Dizziness [Not Recovered/Not Resolved]
  - Dizziness [Not Recovered/Not Resolved]
  - Blood cholesterol increased [Unknown]
  - COVID-19 [Unknown]
  - Pruritus [Unknown]
  - Erythema [Unknown]
  - Incorrect dose administered [Unknown]

NARRATIVE: CASE EVENT DATE: 20230524
